FAERS Safety Report 6985598-1 (Version None)
Quarter: 2010Q3

REPORT INFORMATION
  Report Type: 
  Country: None (occurrence: None)
  Receive Date: 20100915
  Receipt Date: 20100906
  Transmission Date: 20110219
  Serious: Yes (Other)
  Sender: FDA-Public Use
  Company Number: DE-JNJFOC-20100803144

PATIENT
  Sex: Male
  Weight: 43 kg

DRUGS (12)
  1. TOPAMAX [Suspect]
     Indication: MYOCLONIC EPILEPSY
     Route: 048
  2. RISPERDAL [Suspect]
     Indication: PRODUCT USED FOR UNKNOWN INDICATION
     Route: 048
  3. PETINUTIN [Concomitant]
     Indication: MYOCLONIC EPILEPSY
     Route: 048
  4. ACETYLCYSTEINE [Concomitant]
     Route: 048
  5. CREON [Concomitant]
     Dosage: 1 DOSE PER SNACK
     Route: 048
  6. CREON [Concomitant]
     Route: 048
  7. URSO FALK [Concomitant]
     Route: 048
  8. NULYTELY [Concomitant]
     Route: 048
  9. VITAMIN A [Concomitant]
     Route: 048
  10. TOCOPHEROL CONCENTRATE CAP [Concomitant]
     Route: 048
  11. SODIUM CHLORIDE [Concomitant]
     Route: 055
  12. DEKRISTOL [Concomitant]
     Route: 065

REACTIONS (1)
  - ACIDOSIS [None]
